FAERS Safety Report 21404255 (Version 1)
Quarter: 2022Q4

REPORT INFORMATION
  Report Type: Spontaneous
  Country: US (occurrence: US)
  Receive Date: 20221003
  Receipt Date: 20221003
  Transmission Date: 20230113
  Serious: No
  Sender: FDA-Public Use
  Company Number: US-009507513-2209USA010335

PATIENT
  Sex: Male

DRUGS (2)
  1. KEYTRUDA [Suspect]
     Active Substance: PEMBROLIZUMAB
     Indication: Pancreatic carcinoma
     Dosage: LOWER DOSE, Q3W
     Route: 042
     Dates: start: 2019
  2. KEYTRUDA [Suspect]
     Active Substance: PEMBROLIZUMAB
     Dosage: 400 MILLIGRAM, EVERY 6 WEEKS
     Route: 042
     Dates: start: 202110

REACTIONS (6)
  - Ulcer [Not Recovered/Not Resolved]
  - Pruritus [Not Recovered/Not Resolved]
  - Rash [Not Recovered/Not Resolved]
  - Incorrect dose administered [Unknown]
  - Product use in unapproved indication [Unknown]
  - Product dose omission issue [Unknown]

NARRATIVE: CASE EVENT DATE: 20190101
